FAERS Safety Report 25675813 (Version 1)
Quarter: 2025Q3

REPORT INFORMATION
  Report Type: Spontaneous
  Country: RU (occurrence: RU)
  Receive Date: 20250813
  Receipt Date: 20250813
  Transmission Date: 20251021
  Serious: Yes (Hospitalization)
  Sender: ACCORD
  Company Number: RU-MLMSERVICE-20250728-PI587686-00218-1

PATIENT
  Age: 17 Year

DRUGS (12)
  1. METHOTREXATE [Suspect]
     Active Substance: METHOTREXATE
     Indication: Osteosarcoma metastatic
     Dosage: HIGH-DOSE (12 G/M2) ON DAYS 1 AND 8
     Dates: start: 20240305, end: 20240308
  2. CISPLATIN [Concomitant]
     Active Substance: CISPLATIN
     Indication: Osteosarcoma metastatic
     Dosage: FIRST COURSE: 60 MG/M2/DAY
     Dates: start: 20240129, end: 20240201
  3. DOXORUBICIN [Concomitant]
     Active Substance: DOXORUBICIN
     Indication: Osteosarcoma metastatic
     Dosage: 37.5 MG/M2/DAY (INTRAVENOUSLY, 2 DAYS)
     Dates: start: 20240129, end: 20240201
  4. CISPLATIN [Concomitant]
     Active Substance: CISPLATIN
     Indication: Osteosarcoma metastatic
     Dosage: SECOND COURSE STANDARD DOSES
     Dates: start: 20240305, end: 20240308
  5. CISPLATIN [Concomitant]
     Active Substance: CISPLATIN
     Indication: Osteosarcoma metastatic
     Dosage: THIRD COURSE: REPEATING THE SECOND COURSE OF 4 TO WEEK 5
     Dates: start: 20240328, end: 20240408
  6. CISPLATIN [Concomitant]
     Active Substance: CISPLATIN
     Indication: Metastases to lung
     Dosage: FIRST COURSE: 60 MG/M2/DAY
     Dates: start: 20240129, end: 20240201
  7. DOXORUBICIN [Concomitant]
     Active Substance: DOXORUBICIN
     Indication: Osteosarcoma metastatic
     Dosage: SECOND COURSE STANDARD DOSES
     Dates: start: 20240305, end: 20240308
  8. DOXORUBICIN [Concomitant]
     Active Substance: DOXORUBICIN
     Indication: Osteosarcoma metastatic
     Dosage: THIRD COURSE: REPEATING THE SECOND COURSE OF 4 TO WEEK 5
     Dates: start: 20240328, end: 20240408
  9. DOXORUBICIN [Concomitant]
     Active Substance: DOXORUBICIN
     Indication: Metastases to lung
     Dosage: 37.5 MG/M2/DAY
     Dates: start: 20240129, end: 20240201
  10. METHOTREXATE [Suspect]
     Active Substance: METHOTREXATE
     Indication: Metastases to lung
     Dosage: HIGH-DOSE (12 G/M2) ON DAYS 1 AND 8
     Dates: start: 20240328, end: 20240408
  11. METHOTREXATE [Suspect]
     Active Substance: METHOTREXATE
     Indication: Osteosarcoma metastatic
     Dosage: 12 G/M2 THIRD COURSE: REPEATING SECOND COURSE OF 4 TO WEEK 5
     Dates: start: 20240328, end: 20240408
  12. METHOTREXATE [Suspect]
     Active Substance: METHOTREXATE
     Indication: Metastases to lung
     Dosage: HIGH-DOSE METHOTREXATE (12 G/M2) ON DAYS 1 AND 8
     Dates: start: 20240305, end: 20240308

REACTIONS (6)
  - Toxic leukoencephalopathy [Recovered/Resolved]
  - Hepatotoxicity [Recovered/Resolved]
  - Anaemia [Recovered/Resolved]
  - Hypoproteinaemia [Recovered/Resolved]
  - Thrombocytopenia [Recovered/Resolved]
  - Chemotherapeutic drug level increased [Recovered/Resolved]

NARRATIVE: CASE EVENT DATE: 20240401
